FAERS Safety Report 21811701 (Version 2)
Quarter: 2023Q1

REPORT INFORMATION
  Report Type: Report from Study
  Country: US (occurrence: US)
  Receive Date: 20230103
  Receipt Date: 20230308
  Transmission Date: 20230418
  Serious: No
  Sender: FDA-Public Use
  Company Number: US-ABBVIE-4217461

PATIENT
  Age: 65 Year
  Sex: Female

DRUGS (2)
  1. SKYRIZI [Suspect]
     Active Substance: RISANKIZUMAB-RZAA
     Indication: Psoriatic arthropathy
     Dosage: STARTING ON WEEK 16?FORM STRENGTH: 150 MILLIGRAM
     Route: 058
  2. SKYRIZI [Suspect]
     Active Substance: RISANKIZUMAB-RZAA
     Indication: Psoriasis

REACTIONS (7)
  - Ear infection [Recovered/Resolved]
  - Headache [Unknown]
  - Ear haemorrhage [Unknown]
  - Ear pain [Unknown]
  - Ear swelling [Unknown]
  - Otorrhoea [Recovered/Resolved]
  - Ear disorder [Unknown]

NARRATIVE: CASE EVENT DATE: 20221201
